FAERS Safety Report 7891165-8 (Version None)
Quarter: 2011Q4

REPORT INFORMATION
  Report Type: 
  Country: None (occurrence: None)
  Receive Date: 20111103
  Receipt Date: 20110729
  Transmission Date: 20120403
  Serious: No
  Sender: FDA-Public Use
  Company Number: US-AMGEN-USASP2011038652

PATIENT
  Sex: Male

DRUGS (5)
  1. ENBREL [Suspect]
     Dosage: 50 MG, QWK
  2. ENALAPRIL MALEATE [Concomitant]
     Dosage: 2.5 MG, UNK
  3. MULTIVITAMIN                       /00097801/ [Concomitant]
     Dosage: UNK
  4. METHOTREXATE [Concomitant]
     Dosage: 25 MG, UNK
  5. FOLIC ACID [Concomitant]
     Dosage: 1 MG, UNK

REACTIONS (3)
  - INJECTION SITE ERYTHEMA [None]
  - INJECTION SITE SWELLING [None]
  - INJECTION SITE INDURATION [None]
